FAERS Safety Report 20578418 (Version 2)
Quarter: 2022Q2

REPORT INFORMATION
  Report Type: Spontaneous
  Country: AU (occurrence: AU)
  Receive Date: 20220310
  Receipt Date: 20220522
  Transmission Date: 20220720
  Serious: Yes (Other)
  Sender: FDA-Public Use
  Company Number: AU-NOVARTISPH-NVSC2022AU056214

PATIENT
  Sex: Female

DRUGS (1)
  1. ZOLGENSMA [Suspect]
     Active Substance: ONASEMNOGENE ABEPARVOVEC-XIOI
     Indication: Product used for unknown indication
     Dosage: UNK UNK, ONCE/SINGLE
     Route: 042
     Dates: start: 202106

REACTIONS (3)
  - Swelling face [Unknown]
  - Dyspnoea [Not Recovered/Not Resolved]
  - Hepatic enzyme increased [Unknown]
